FAERS Safety Report 9066943 (Version 1)
Quarter: 2013Q1

REPORT INFORMATION
  Report Type: Report from Study
  Country: US (occurrence: US)
  Receive Date: 20130201
  Receipt Date: 20130201
  Transmission Date: 20140127
  Serious: No
  Sender: FDA-Public Use
  Company Number: US-ABBOTT-12P-163-1029353-00

PATIENT
  Sex: Female
  Weight: 57.2 kg

DRUGS (5)
  1. HUMIRA [Suspect]
     Indication: RHEUMATOID ARTHRITIS
     Dates: start: 2007
  2. CELEBREX [Concomitant]
     Indication: PRODUCT USED FOR UNKNOWN INDICATION
  3. FOLIC ACID [Concomitant]
     Indication: PRODUCT USED FOR UNKNOWN INDICATION
  4. METHOTREXATE [Concomitant]
     Indication: PRODUCT USED FOR UNKNOWN INDICATION
  5. MULTIVITAMIN [Concomitant]
     Indication: PRODUCT USED FOR UNKNOWN INDICATION

REACTIONS (2)
  - Skin fissures [Not Recovered/Not Resolved]
  - Dry skin [Not Recovered/Not Resolved]
